FAERS Safety Report 7141417-4 (Version None)
Quarter: 2010Q4

REPORT INFORMATION
  Report Type: 
  Country: None (occurrence: None)
  Receive Date: 20101203
  Receipt Date: 20101203
  Transmission Date: 20110411
  Serious: Yes (Life-Threatening)
  Sender: FDA-Public Use
  Company Number: None

PATIENT
  Sex: Female
  Weight: 63.9572 kg

DRUGS (1)
  1. PROPOXYPHENE HCL AND ACETAMINOPHEN [Suspect]
     Indication: DYSMENORRHOEA
     Dosage: 1 PILL PRN PO
     Route: 048
     Dates: start: 20050409, end: 20101121

REACTIONS (3)
  - CARDIAC FLUTTER [None]
  - DYSPNOEA [None]
  - HEART RATE INCREASED [None]
